FAERS Safety Report 20288880 (Version 1)
Quarter: 2022Q1

REPORT INFORMATION
  Report Type: Spontaneous
  Country: JP (occurrence: JP)
  Receive Date: 20220104
  Receipt Date: 20220104
  Transmission Date: 20220423
  Serious: Yes (Hospitalization)
  Sender: FDA-Public Use
  Company Number: JP-ALK-ABELLO A/S-2021AA005115

PATIENT

DRUGS (2)
  1. MITICURE [Suspect]
     Active Substance: DERMATOPHAGOIDES FARINAE\DERMATOPHAGOIDES PTERONYSSINUS
     Indication: Product used for unknown indication
     Dosage: 10.000 JAU
     Route: 060
  2. MITICURE [Suspect]
     Active Substance: DERMATOPHAGOIDES FARINAE\DERMATOPHAGOIDES PTERONYSSINUS
     Dosage: 3.300 JAU
     Route: 060

REACTIONS (7)
  - Stevens-Johnson syndrome [Unknown]
  - Coating in mouth [Unknown]
  - Stomatitis [Unknown]
  - Pyrexia [Unknown]
  - Oral candidiasis [Unknown]
  - Oral pain [Unknown]
  - Pruritus [Unknown]

NARRATIVE: CASE EVENT DATE: 20211223
